FAERS Safety Report 19586293 (Version 3)
Quarter: 2021Q3

REPORT INFORMATION
  Report Type: Spontaneous
  Country: US (occurrence: CA)
  Receive Date: 20210721
  Receipt Date: 20210827
  Transmission Date: 20211014
  Serious: Yes (Other)
  Sender: FDA-Public Use
  Company Number: US-ALK-ABELLO A/S-2021AA002957

PATIENT

DRUGS (4)
  1. STERILE DILUENT FOR ALLERGENIC EXTRACT NOS [Suspect]
     Active Substance: ALBUMIN HUMAN OR GLYCERIN OR PHENOL
     Dosage: UNK
     Route: 058
     Dates: start: 20210623
  2. STERILE DILUENT FOR ALLERGENIC EXTRACT NOS [Suspect]
     Active Substance: ALBUMIN HUMAN OR GLYCERIN OR PHENOL
     Indication: RHINITIS ALLERGIC
     Dosage: UNK
     Route: 058
     Dates: start: 20210623
  3. BUDESONIDE. [Concomitant]
     Active Substance: BUDESONIDE
     Dosage: 64 MICROGRAM, QD
     Route: 045
  4. OLOPATADINE HYDROCHLORIDE. [Concomitant]
     Active Substance: OLOPATADINE HYDROCHLORIDE
     Dosage: 1 DROP IN EACH AFFECTED EYE, QD
     Route: 047

REACTIONS (2)
  - Incorrect dosage administered [Recovered/Resolved]
  - Anaphylactic reaction [Recovered/Resolved]

NARRATIVE: CASE EVENT DATE: 20210623
